FAERS Safety Report 6466538-0 (Version None)
Quarter: 2009Q4

REPORT INFORMATION
  Report Type: 
  Country: None (occurrence: None)
  Receive Date: 20091202
  Receipt Date: 20091124
  Transmission Date: 20100525
  Serious: Yes (Other)
  Sender: FDA-Public Use
  Company Number: US-BAXTER-2009BH017586

PATIENT
  Age: 29 Year
  Sex: Male
  Weight: 122 kg

DRUGS (9)
  1. GAMMAGARD S/D [Suspect]
     Indication: BRUTON'S AGAMMAGLOBULINAEMIA
     Route: 042
     Dates: start: 20060101
  2. ASPIRIN [Concomitant]
     Indication: PREMEDICATION
     Route: 048
     Dates: start: 20060101
  3. BENADRYL [Concomitant]
     Indication: PREMEDICATION
     Route: 048
     Dates: start: 20060101
  4. SOLU-MEDROL [Concomitant]
     Indication: PREMEDICATION
     Route: 042
     Dates: start: 20060101
  5. PREDNISONE [Concomitant]
     Route: 048
     Dates: start: 20050101
  6. FLEXERIL [Concomitant]
     Indication: PAIN
     Route: 048
  7. VICODIN [Concomitant]
     Indication: PAIN
     Route: 048
  8. PERCOCET [Concomitant]
     Indication: PAIN
     Route: 048
  9. ZOFRAN [Concomitant]
     Indication: NAUSEA
     Route: 048

REACTIONS (7)
  - DRUG INTOLERANCE [None]
  - GRANULOMA SKIN [None]
  - HAEMOPTYSIS [None]
  - HEADACHE [None]
  - MUSCLE SPASMS [None]
  - NAUSEA [None]
  - PULMONARY HAEMORRHAGE [None]
